FAERS Safety Report 5927227-1 (Version None)
Quarter: 2008Q4

REPORT INFORMATION
  Report Type: 
  Country: None (occurrence: None)
  Receive Date: 20081022
  Receipt Date: 20080902
  Transmission Date: 20090506
  Serious: Yes (Death)
  Sender: FDA-Public Use
  Company Number: JP-ABBOTT-08P-087-0483247-00

PATIENT
  Sex: Male

DRUGS (8)
  1. AKINETON [Suspect]
     Indication: SCHIZOPHRENIA
     Route: 048
  2. HALOPERIDOL [Suspect]
     Indication: SCHIZOPHRENIA
     Route: 048
  3. CHLORPROMAZINE HCL [Suspect]
     Indication: SCHIZOPHRENIA
     Route: 048
  4. TRIHEXYPHENIDYL HYDROCHLORIDE [Suspect]
     Indication: SCHIZOPHRENIA
     Route: 048
  5. DIAZEPAM [Suspect]
     Indication: SCHIZOPHRENIA
     Route: 048
  6. BROTIZOLAM [Suspect]
     Indication: SCHIZOPHRENIA
     Route: 048
  7. SENNA ALEXANDRINA LEAF [Suspect]
     Indication: CONSTIPATION
     Route: 048
  8. RISPERIDONE [Suspect]
     Indication: SCHIZOPHRENIA
     Route: 048

REACTIONS (1)
  - ABDOMINAL COMPARTMENT SYNDROME [None]
